FAERS Safety Report 20417569 (Version 1)
Quarter: 2022Q1

REPORT INFORMATION
  Report Type: Spontaneous
  Country: US (occurrence: None)
  Receive Date: 20220202
  Receipt Date: 20220202
  Transmission Date: 20220423
  Serious: Yes (unspecified)
  Sender: FDA-Public Use
  Company Number: None

PATIENT
  Age: 49 Year
  Sex: Male
  Weight: 74.84 kg

DRUGS (5)
  1. DULOXETINE [Suspect]
     Active Substance: DULOXETINE
     Indication: Arthritis
     Dosage: FREQUENCY : DAILY;?
     Route: 048
     Dates: start: 20181210
  2. DULOXETINE [Suspect]
     Active Substance: DULOXETINE
     Indication: Depression
  3. TAMSULOSIN [Suspect]
     Active Substance: TAMSULOSIN
     Indication: Prostatomegaly
     Dosage: FREQUENCY : DAILY;?
     Route: 048
     Dates: start: 20181210
  4. MANITOBA FIBER [Concomitant]
  5. HEMP PROTEIN AND FIBER [Concomitant]

REACTIONS (5)
  - Arthritis [None]
  - Intestinal obstruction [None]
  - Gingival disorder [None]
  - Product complaint [None]
  - Drug ineffective [None]

NARRATIVE: CASE EVENT DATE: 20211010
